FAERS Safety Report 11799741 (Version 1)
Quarter: 2015Q4

REPORT INFORMATION
  Report Type: Spontaneous
  Country: GR (occurrence: GR)
  Receive Date: 20151203
  Receipt Date: 20151203
  Transmission Date: 20160305
  Serious: Yes (Other)
  Sender: FDA-Public Use
  Company Number: PHHY2015GR155528

PATIENT
  Age: 77 Year
  Sex: Female

DRUGS (2)
  1. IPRATROPIUM, SALBUTAMOL [Suspect]
     Active Substance: ALBUTEROL\IPRATROPIUM
     Indication: WHEEZING
  2. IPRATROPIUM, SALBUTAMOL [Suspect]
     Active Substance: ALBUTEROL\IPRATROPIUM
     Indication: BRONCHOSPASM
     Dosage: UNK
     Route: 065

REACTIONS (2)
  - Hypertensive heart disease [None]
  - Left ventricle outflow tract obstruction [Recovering/Resolving]
